FAERS Safety Report 4586186-7 (Version None)
Quarter: 2005Q1

REPORT INFORMATION
  Report Type: 
  Country: None (occurrence: None)
  Receive Date: 20050217
  Receipt Date: 20040518
  Transmission Date: 20050727
  Serious: Yes (Other)
  Sender: FDA-Public Use
  Company Number: US-MERCK-0405USA01310

PATIENT
  Sex: Female

DRUGS (2)
  1. ZETIA [Suspect]
     Indication: HYPERCHOLESTEROLAEMIA
     Route: 048
     Dates: start: 20031201
  2. DIOVAN [Concomitant]
     Route: 065

REACTIONS (6)
  - ARTHRALGIA [None]
  - ARTHROPATHY [None]
  - DYSPEPSIA [None]
  - FLATULENCE [None]
  - PAIN IN EXTREMITY [None]
  - RHINORRHOEA [None]
